FAERS Safety Report 16970053 (Version 1)
Quarter: 2019Q4

REPORT INFORMATION
  Report Type: Report from Study
  Country: DE (occurrence: DE)
  Receive Date: 20191029
  Receipt Date: 20191029
  Transmission Date: 20200122
  Serious: Yes (Other)
  Sender: FDA-Public Use
  Company Number: DE-TEVA-2019-DE-1129638

PATIENT
  Age: 37 Year
  Sex: Female

DRUGS (1)
  1. COPAXONE [Suspect]
     Active Substance: GLATIRAMER ACETATE
     Indication: MULTIPLE SCLEROSIS
     Dates: start: 20190926, end: 20191016

REACTIONS (5)
  - Balance disorder [Unknown]
  - Multiple sclerosis [Unknown]
  - Visual impairment [Unknown]
  - Insomnia [Unknown]
  - Movement disorder [Unknown]

NARRATIVE: CASE EVENT DATE: 201909
